FAERS Safety Report 7525619-0 (Version None)
Quarter: 2011Q2

REPORT INFORMATION
  Report Type: 
  Country: None (occurrence: None)
  Receive Date: 20110606
  Receipt Date: 20110523
  Transmission Date: 20111010
  Serious: Yes (Death, Other)
  Sender: FDA-Public Use
  Company Number: PHEH2008US10283

PATIENT
  Sex: Female
  Weight: 167.8 kg

DRUGS (31)
  1. SYNTHROID [Concomitant]
  2. FLEXERIL [Concomitant]
  3. CELEBREX [Concomitant]
  4. AMBIEN [Concomitant]
  5. PRILOSEC [Concomitant]
  6. PROTONIX [Concomitant]
  7. OXYCONTIN [Concomitant]
  8. EVISTA [Concomitant]
  9. VALIUM [Concomitant]
  10. CIPRO [Concomitant]
  11. FASLODEX [Concomitant]
  12. AREDIA [Suspect]
     Indication: BONE LOSS
  13. ALLOPURINOL [Concomitant]
  14. PREDNISONE [Concomitant]
  15. PHENAZOPYRIDINE HCL TAB [Concomitant]
  16. CALCIUM CARBONATE [Concomitant]
  17. COLACE [Concomitant]
  18. MEROPENEM [Concomitant]
  19. FLAGYL [Concomitant]
  20. AREDIA [Suspect]
     Indication: OSTEOPOROSIS
     Dates: start: 20040101, end: 20060101
  21. ZOMETA [Suspect]
     Indication: BONE LOSS
  22. MEDROL [Concomitant]
  23. SUDAFED 12 HOUR [Concomitant]
  24. ZOMETA [Suspect]
     Indication: OSTEOPOROSIS
     Dates: start: 20060101, end: 20070101
  25. IBUPROFEN (ADVIL) [Concomitant]
  26. NEURONTIN [Concomitant]
  27. FEMARA [Concomitant]
  28. LYRICA [Concomitant]
  29. LEVAQUIN [Concomitant]
  30. IBUPROFEN [Concomitant]
  31. FERROUS SULFATE TAB [Concomitant]

REACTIONS (49)
  - BRONCHITIS [None]
  - CELLULITIS [None]
  - BACK PAIN [None]
  - OSTEOARTHRITIS [None]
  - LYMPHADENOPATHY [None]
  - RESPIRATORY FAILURE [None]
  - SLEEP APNOEA SYNDROME [None]
  - NEUTROPENIA [None]
  - EAR PAIN [None]
  - KYPHOSIS [None]
  - CARDIAC FAILURE CONGESTIVE [None]
  - OSTEONECROSIS OF JAW [None]
  - ROTATOR CUFF SYNDROME [None]
  - PAIN IN JAW [None]
  - LACUNAR INFARCTION [None]
  - OSTEOMYELITIS [None]
  - MUSCULOSKELETAL DISCOMFORT [None]
  - METASTASIS [None]
  - HYPOXIA [None]
  - LOOSE TOOTH [None]
  - OEDEMA PERIPHERAL [None]
  - CALCULUS URETERIC [None]
  - HYPOVENTILATION [None]
  - PANCREATIC CARCINOMA [None]
  - ADENOCARCINOMA [None]
  - INSOMNIA [None]
  - TENDERNESS [None]
  - FATIGUE [None]
  - SPINAL CORD INJURY THORACIC [None]
  - MUSCULOSKELETAL PAIN [None]
  - LUNG NEOPLASM [None]
  - BLOOD POTASSIUM DECREASED [None]
  - BREAST CANCER [None]
  - TOOTH ABSCESS [None]
  - EPISTAXIS [None]
  - HYDRONEPHROSIS [None]
  - INJURY [None]
  - ANXIETY [None]
  - THYROID MASS [None]
  - TOOTH INFECTION [None]
  - ARTHRALGIA [None]
  - RHINALGIA [None]
  - STAG HORN CALCULUS [None]
  - DEATH [None]
  - PAIN [None]
  - BONE LESION [None]
  - SKIN REACTION [None]
  - CLAVICLE FRACTURE [None]
  - PNEUMONIA [None]
